FAERS Safety Report 10533723 (Version 1)
Quarter: 2014Q4

REPORT INFORMATION
  Report Type: Spontaneous
  Country: US (occurrence: US)
  Receive Date: 20141022
  Receipt Date: 20141022
  Transmission Date: 20150529
  Serious: Yes (Hospitalization)
  Sender: FDA-Public Use
  Company Number: US-JNJFOC-20141008315

PATIENT
  Sex: Female

DRUGS (4)
  1. DURAGESIC [Suspect]
     Active Substance: FENTANYL
     Indication: PRODUCT USED FOR UNKNOWN INDICATION
     Route: 062
  2. DURAGESIC [Suspect]
     Active Substance: FENTANYL
     Indication: PRODUCT USED FOR UNKNOWN INDICATION
     Route: 062
  3. DURAGESIC [Suspect]
     Active Substance: FENTANYL
     Indication: PRODUCT USED FOR UNKNOWN INDICATION
     Route: 062
  4. DURAGESIC [Suspect]
     Active Substance: FENTANYL
     Indication: PRODUCT USED FOR UNKNOWN INDICATION
     Dosage: 100 + 25
     Route: 062

REACTIONS (11)
  - Agitation [Recovering/Resolving]
  - Product quality issue [Unknown]
  - Drug withdrawal syndrome [Recovering/Resolving]
  - Hospitalisation [Unknown]
  - Anxiety [Recovering/Resolving]
  - Wrong technique in drug usage process [Unknown]
  - Insomnia [Recovering/Resolving]
  - Night sweats [Recovering/Resolving]
  - Panic disorder [Recovering/Resolving]
  - Dry mouth [Recovering/Resolving]
  - Diarrhoea [Recovering/Resolving]
